FAERS Safety Report 11062335 (Version 2)
Quarter: 2015Q2

REPORT INFORMATION
  Report Type: Spontaneous
  Country: NZ (occurrence: NZ)
  Receive Date: 20150424
  Receipt Date: 20150527
  Transmission Date: 20150821
  Serious: Yes (Death, Hospitalization)
  Sender: FDA-Public Use
  Company Number: NZ-NOVOPROD-446519

PATIENT
  Age: 71 Year
  Sex: Male

DRUGS (3)
  1. NOVOSEVEN [Suspect]
     Active Substance: COAGULATION FACTOR VIIA RECOMBINANT HUMAN
     Dosage: 90 ?G/KG AT 4 HOURLY INTERVALS
     Route: 042
     Dates: start: 20150410, end: 20150414
  2. NOVOSEVEN [Suspect]
     Active Substance: COAGULATION FACTOR VIIA RECOMBINANT HUMAN
     Indication: PROPHYLAXIS
     Dosage: 90 ?G/KG, QD
     Route: 042
     Dates: start: 20141224, end: 20150324
  3. NOVOSEVEN [Suspect]
     Active Substance: COAGULATION FACTOR VIIA RECOMBINANT HUMAN
     Indication: HAEMOPHILIA A WITH ANTI FACTOR VIII
     Dosage: UNK
     Route: 042
     Dates: start: 201406

REACTIONS (3)
  - Upper gastrointestinal haemorrhage [Fatal]
  - Abdominal pain [Unknown]
  - Haematemesis [Fatal]

NARRATIVE: CASE EVENT DATE: 20150410
